FAERS Safety Report 7287999-3 (Version None)
Quarter: 2011Q1

REPORT INFORMATION
  Report Type: 
  Country: None (occurrence: None)
  Receive Date: 20110211
  Receipt Date: 20110204
  Transmission Date: 20110831
  Serious: Yes (Other)
  Sender: FDA-Public Use
  Company Number: JP-PFIZER INC-2010179280

PATIENT
  Age: 72 Year
  Sex: Male

DRUGS (11)
  1. FLIVAS [Concomitant]
     Indication: BENIGN PROSTATIC HYPERPLASIA
     Dosage: 50 MG/DAY
     Route: 048
  2. BLOPRESS [Concomitant]
     Indication: HYPERTENSION
     Dosage: 4 MG/DAY
     Route: 048
  3. DETRUSITOL [Suspect]
     Indication: HYPERTONIC BLADDER
     Dosage: 4 MG, 1X/DAY
     Route: 048
     Dates: start: 20101210, end: 20101222
  4. PRAMIPEXOLE [Concomitant]
     Dosage: UNK
  5. SYMMETREL [Concomitant]
     Dosage: UNK
  6. EC DOPARL [Concomitant]
     Dosage: UNK
  7. REQUIP [Concomitant]
     Dosage: UNK
  8. ADALAT CC [Concomitant]
     Indication: HYPERTENSION
     Dosage: 20 MG/DAY
     Route: 048
  9. SELEGILINE HCL [Suspect]
     Indication: PARKINSON'S DISEASE
     Dosage: UNK
     Route: 048
  10. CASODEX [Concomitant]
     Indication: PROSTATE CANCER
     Dosage: 80 MG/DAY
     Route: 048
  11. ASPIRIN [Concomitant]
     Dosage: UNK
     Route: 048

REACTIONS (1)
  - HALLUCINATION, VISUAL [None]
